FAERS Safety Report 23652451 (Version 1)
Quarter: 2024Q1

REPORT INFORMATION
  Report Type: Spontaneous
  Country: IT (occurrence: IT)
  Receive Date: 20240320
  Receipt Date: 20240320
  Transmission Date: 20240409
  Serious: Yes (Other)
  Sender: FDA-Public Use
  Company Number: None

PATIENT
  Age: 78 Year
  Sex: Male
  Weight: 64 kg

DRUGS (4)
  1. FLUOROURACIL [Suspect]
     Active Substance: FLUOROURACIL
     Indication: Colon cancer stage IV
     Dosage: START OF THERAPY 11/15/2023 - THERAPY EVERY 14 DAYS - 5TH CYCLE - BOLUS INFUSION.?DRUG ALSO ADMIN...
     Route: 042
     Dates: start: 20240111, end: 20240111
  2. AFLIBERCEPT [Suspect]
     Active Substance: AFLIBERCEPT
     Indication: Colon cancer stage IV
     Dosage: START OF THERAPY 11/15/2023 - THERAPY EVERY 14 DAYS - V CYCLE
     Route: 042
     Dates: start: 20240111, end: 20240111
  3. IRINOTECAN [Suspect]
     Active Substance: IRINOTECAN
     Indication: Colon cancer stage IV
     Dosage: START OF THERAPY 11/15/2023 - THERAPY EVERY 14 DAYS - V CYCLE
     Route: 042
     Dates: start: 20240111, end: 20240111
  4. LEVOLEUCOVORIN [Concomitant]
     Active Substance: LEVOLEUCOVORIN
     Indication: Product used for unknown indication
     Dosage: LEVO
     Route: 065

REACTIONS (1)
  - Azotaemia [Recovering/Resolving]

NARRATIVE: CASE EVENT DATE: 20240122
